FAERS Safety Report 5019854-3 (Version None)
Quarter: 2006Q2

REPORT INFORMATION
  Report Type: 
  Country: None (occurrence: None)
  Receive Date: 20060607
  Receipt Date: 20060601
  Transmission Date: 20061013
  Serious: Yes (Other)
  Sender: FDA-Public Use
  Company Number: US-BOEHRINGER INGELHEIM PHARMACEUTICALS, INC.-2006-DE-02834GD

PATIENT
  Sex: Male

DRUGS (2)
  1. SERTRALINE [Suspect]
     Indication: SCHIZOPHRENIA
  2. CLONIDINE [Suspect]
     Indication: SCHIZOPHRENIA

REACTIONS (5)
  - AGITATION [None]
  - DROOLING [None]
  - DRUG INEFFECTIVE [None]
  - IRRITABILITY [None]
  - SOMNOLENCE [None]
